FAERS Safety Report 13916516 (Version 1)
Quarter: 2017Q3

REPORT INFORMATION
  Report Type: Spontaneous
  Country: US (occurrence: US)
  Receive Date: 20170829
  Receipt Date: 20170829
  Transmission Date: 20171127
  Serious: No
  Sender: FDA-Public Use
  Company Number: US-MYLANLABS-2017M1034835

PATIENT
  Age: 70 Year
  Sex: Female
  Weight: 68.4 kg

DRUGS (1)
  1. TEMAZEPAM MYLAN [Suspect]
     Active Substance: TEMAZEPAM
     Indication: SLEEP DISORDER
     Dosage: UNK

REACTIONS (1)
  - Weight increased [Recovering/Resolving]
